FAERS Safety Report 7914539-5 (Version None)
Quarter: 2011Q4

REPORT INFORMATION
  Report Type: 
  Country: None (occurrence: None)
  Receive Date: 20111115
  Receipt Date: 20111031
  Transmission Date: 20120403
  Serious: Yes (Other)
  Sender: FDA-Public Use
  Company Number: PHHY2011IN96044

PATIENT
  Age: 32 Year
  Sex: Female

DRUGS (11)
  1. PREDNISOLONE [Concomitant]
     Dosage: 30 MG, QD
  2. SIROLIMUS [Concomitant]
     Indication: RENAL TRANSPLANT
  3. CYCLOSPORINE [Interacting]
     Dosage: 1.5 MG/KG, QD
  4. ANTIBIOTICS [Concomitant]
  5. PREDNISOLONE [Concomitant]
     Dosage: 7.5 MG, QD
  6. CYCLOSPORINE [Suspect]
     Indication: RENAL TRANSPLANT
     Dosage: 8 MG/KG, UNK
  7. CYCLOSPORINE [Interacting]
     Dosage: 2 MG/KG
  8. BASILIXIMAB [Interacting]
     Indication: RENAL TRANSPLANT
     Dosage: 20 MG, ON DAY 1 AND DAY 4
  9. AZATHIOPRINE [Concomitant]
     Indication: RENAL TRANSPLANT
     Dosage: 2 MG/KG, UNK
  10. PREDNISOLONE [Concomitant]
     Indication: RENAL TRANSPLANT
     Dosage: 0.5 MG/KG, UNK
  11. PREDNISOLONE [Concomitant]
     Dosage: 40 MG, QD  TILL 6 WEEKS

REACTIONS (11)
  - RENAL CORTICAL NECROSIS [None]
  - PANCYTOPENIA [None]
  - PLATELET COUNT DECREASED [None]
  - ANAEMIA [None]
  - BLOOD CREATININE INCREASED [None]
  - LEUKOPENIA [None]
  - RENAL TUBULAR NECROSIS [None]
  - ACCELERATED HYPERTENSION [None]
  - PROTEINURIA [None]
  - LEUKOCYTOSIS [None]
  - DRUG INTERACTION [None]
